FAERS Safety Report 5280606-0 (Version None)
Quarter: 2007Q1

REPORT INFORMATION
  Report Type: 
  Country: None (occurrence: None)
  Receive Date: 20061221
  Receipt Date: 20060828
  Transmission Date: 20070707
  Serious: No
  Sender: FDA-Public Use
  Company Number: US-CVT-061378

PATIENT
  Age: 74 Year
  Sex: Female

DRUGS (6)
  1. RANEXA [Suspect]
     Indication: ANGINA PECTORIS
     Dosage: 500 MG, BID, ORAL
     Route: 048
     Dates: start: 20060615, end: 20060623
  2. LIPITOR [Concomitant]
  3. LOTREL [Concomitant]
  4. FUROSEMIDE /00032601/(FUROSEMIDE) [Concomitant]
  5. ACIPHEX [Concomitant]
  6. PHAZYME /00159502/(SIMETICONE) [Concomitant]

REACTIONS (4)
  - ASTHENIA [None]
  - ATRIOVENTRICULAR BLOCK FIRST DEGREE [None]
  - ATRIOVENTRICULAR BLOCK SECOND DEGREE [None]
  - FATIGUE [None]
